FAERS Safety Report 4446735-6 (Version None)
Quarter: 2004Q3

REPORT INFORMATION
  Report Type: 
  Country: None (occurrence: None)
  Receive Date: 20040910
  Receipt Date: 20040823
  Transmission Date: 20050211
  Serious: Yes (Hospitalization)
  Sender: FDA-Public Use
  Company Number: 04H-056-0271536-00

PATIENT
  Age: 30 Year
  Sex: Male

DRUGS (1)
  1. PENTOTHAL [Suspect]
     Indication: ANAESTHESIA
     Dosage: INTRAVENOUS
     Route: 042
     Dates: start: 20040623, end: 20040623

REACTIONS (2)
  - ANAESTHETIC COMPLICATION [None]
  - ANAPHYLACTIC SHOCK [None]
